FAERS Safety Report 17854676 (Version 1)
Quarter: 2020Q2

REPORT INFORMATION
  Report Type: Spontaneous
  Country: GB (occurrence: GB)
  Receive Date: 20200603
  Receipt Date: 20200603
  Transmission Date: 20200714
  Serious: Yes (Hospitalization)
  Sender: FDA-Public Use
  Company Number: GB-TEVA-2020-GB-1243251

PATIENT
  Age: 85 Year
  Sex: Female

DRUGS (11)
  1. ADCAL-D3 [Concomitant]
     Active Substance: CALCIUM CARBONATE\CHOLECALCIFEROL
     Dosage: 3000 MG
     Route: 048
  2. LAXIDO [Concomitant]
     Active Substance: POLYETHYLENE GLYCOL 3350\POTASSIUM CHLORIDE\SODIUM BICARBONATE\SODIUM CHLORIDE
     Dosage: 1 DOSAGE FORMS
     Route: 048
  3. PARACETAMOL [Concomitant]
     Active Substance: ACETAMINOPHEN
     Dosage: ONE OR TWO, FOUR TIMES A DAY, 500 MG
     Route: 048
  4. FENOFIBRATE MICRONISED [Concomitant]
     Active Substance: FENOFIBRATE
     Dosage: 267 MG
     Route: 048
  5. ALENDRONIC ACID [Suspect]
     Active Substance: ALENDRONIC ACID
     Dosage: 70 MG
     Route: 048
     Dates: end: 20200507
  6. CODEINE [Concomitant]
     Active Substance: CODEINE
     Dosage: ONE OR TWO, FOUR TIMES A DAY, 30 MG
     Route: 050
  7. BISOPROLOL [Concomitant]
     Active Substance: BISOPROLOL
     Dosage: 2.5 MILLIGRAM DAILY; MORNING
     Route: 048
  8. METHOTREXATE. [Concomitant]
     Active Substance: METHOTREXATE
     Dosage: 20 MG
     Route: 048
  9. APIXABAN [Suspect]
     Active Substance: APIXABAN
     Dosage: 10 MG, THERE ARE PLANS TO RESTART THIS ONCE SYMPTOMS ABATE. UNDER REVIEW.
     Route: 048
     Dates: end: 20200507
  10. RANITIDINE. [Concomitant]
     Active Substance: RANITIDINE
     Dosage: 300 MG
     Route: 050
  11. FOLIC ACID. [Concomitant]
     Active Substance: FOLIC ACID
     Dosage: ON DIFFERENT DAY TO METHOTREXATE, 5 MG
     Route: 048

REACTIONS (3)
  - Haematemesis [Recovering/Resolving]
  - Gastrointestinal haemorrhage [Recovering/Resolving]
  - Oesophagitis [Recovering/Resolving]

NARRATIVE: CASE EVENT DATE: 20200507
